FAERS Safety Report 18581024 (Version 1)
Quarter: 2020Q4

REPORT INFORMATION
  Report Type: Spontaneous
  Country: US (occurrence: US)
  Receive Date: 20201204
  Receipt Date: 20201204
  Transmission Date: 20210114
  Serious: Yes (Other)
  Sender: FDA-Public Use
  Company Number: US-ALLERGAN-2046766US

PATIENT
  Sex: Male
  Weight: 4.1 kg

DRUGS (5)
  1. LEXAPRO [Suspect]
     Active Substance: ESCITALOPRAM OXALATE
     Indication: EXPOSURE DURING PREGNANCY
     Dosage: UNK UNK, UNKNOWN
     Route: 064
     Dates: end: 20190503
  2. ABILIFY [Suspect]
     Active Substance: ARIPIPRAZOLE
     Indication: EXPOSURE DURING PREGNANCY
     Dosage: 20 MG, UNKNOWN
     Route: 064
     Dates: end: 20190503
  3. KEFLEX [Concomitant]
     Active Substance: CEPHALEXIN
     Indication: EXPOSURE DURING PREGNANCY
     Dosage: UNK
     Route: 064
  4. HYDROXYZINE [Suspect]
     Active Substance: HYDROXYZINE HYDROCHLORIDE
     Indication: EXPOSURE DURING PREGNANCY
     Dosage: UNK, UNKNOWN
     Route: 064
     Dates: end: 20190503
  5. METHOCARBAMOL. [Concomitant]
     Active Substance: METHOCARBAMOL
     Indication: EXPOSURE DURING PREGNANCY
     Dosage: UNK
     Route: 064

REACTIONS (3)
  - Pregnancy [Unknown]
  - Oxygen consumption decreased [Recovered/Resolved]
  - Apnoea [Recovered/Resolved]

NARRATIVE: CASE EVENT DATE: 20190503
